FAERS Safety Report 8325326-0 (Version None)
Quarter: 2012Q2

REPORT INFORMATION
  Report Type: 
  Country: None (occurrence: None)
  Receive Date: 20120427
  Receipt Date: 20120413
  Transmission Date: 20120825
  Serious: Yes (Hospitalization)
  Sender: FDA-Public Use
  Company Number: JP-2012-14981

PATIENT
  Age: 52 Year
  Sex: Female

DRUGS (5)
  1. PLETAL [Suspect]
     Indication: CORONARY ARTERY DISEASE
     Dosage: 50 MG MILLIGRAM(S), BID, ORAL
     Route: 048
  2. CLOPIDOGREL [Concomitant]
  3. ASPIRIN [Concomitant]
  4. PREDNISOLONE ACETATE [Concomitant]
  5. HYDROXYQUINOLONE (HYDROXYQUINOLONE) [Concomitant]

REACTIONS (3)
  - ELECTROCARDIOGRAM ST SEGMENT ELEVATION [None]
  - THROMBOSIS IN DEVICE [None]
  - CORONARY ARTERY REOCCLUSION [None]
